FAERS Safety Report 11632438 (Version 1)
Quarter: 2015Q4

REPORT INFORMATION
  Report Type: Spontaneous
  Country: US (occurrence: US)
  Receive Date: 20151015
  Receipt Date: 20151015
  Transmission Date: 20160304
  Serious: No
  Sender: FDA-Public Use
  Company Number: US-DRREDDYS-USA/USA/15/0047226

PATIENT
  Sex: Female

DRUGS (1)
  1. CLODERM [Suspect]
     Active Substance: CLOCORTOLONE PIVALATE
     Indication: PRODUCT USED FOR UNKNOWN INDICATION

REACTIONS (2)
  - Skin hyperpigmentation [Unknown]
  - Pruritus [Unknown]

NARRATIVE: CASE EVENT DATE: 201502
